FAERS Safety Report 4301904-0 (Version None)
Quarter: 2004Q1

REPORT INFORMATION
  Report Type: 
  Country: None (occurrence: None)
  Receive Date: 20040218
  Receipt Date: 20031203
  Transmission Date: 20041129
  Serious: Yes (Other)
  Sender: FDA-Public Use
  Company Number: 200320237US

PATIENT
  Age: 79 Year
  Sex: Female

DRUGS (8)
  1. LANTUS [Suspect]
     Indication: DIABETES MELLITUS NON-INSULIN-DEPENDENT
     Dosage: 4 U QD
     Dates: end: 20021001
  2. LANTUS [Suspect]
     Indication: DIABETES MELLITUS NON-INSULIN-DEPENDENT
     Dosage: 13 U QD
     Dates: start: 20021001, end: 20031101
  3. GLYBURIDE [Concomitant]
  4. PIOGLITAZONE HCL [Concomitant]
  5. METFORMIN HYDROCHLORIDE [Concomitant]
  6. ATENOLOL [Concomitant]
  7. LIPITOR [Concomitant]
  8. SPIRONOLACTONE [Concomitant]

REACTIONS (1)
  - HYPOGLYCAEMIA [None]
